FAERS Safety Report 21768436 (Version 1)
Quarter: 2022Q4

REPORT INFORMATION
  Report Type: Spontaneous
  Country: US (occurrence: None)
  Receive Date: 20221221
  Receipt Date: 20221221
  Transmission Date: 20230113
  Serious: Yes (Hospitalization)
  Sender: FDA-Public Use
  Company Number: None

PATIENT
  Sex: Female

DRUGS (1)
  1. BOTOX [Suspect]
     Active Substance: ONABOTULINUMTOXINA
     Indication: Migraine
     Dosage: OTHER STRENGTH : 200 UNIT;?OTHER QUANTITY : 200 UNIT;?FREQUENCY : ONCE;?
     Route: 058
     Dates: start: 20220729

REACTIONS (4)
  - Craniocerebral injury [None]
  - Hypoxia [None]
  - Multiple allergies [None]
  - Drug hypersensitivity [None]
